FAERS Safety Report 21816327 (Version 1)
Quarter: 2023Q1

REPORT INFORMATION
  Report Type: Spontaneous
  Country: US (occurrence: None)
  Receive Date: 20230103
  Receipt Date: 20230103
  Transmission Date: 20230417
  Serious: Yes (Other)
  Sender: FDA-Public Use
  Company Number: None

PATIENT
  Age: 48 Year
  Sex: Male

DRUGS (1)
  1. BOTOX [Suspect]
     Active Substance: ONABOTULINUMTOXINA
     Indication: Migraine
     Dosage: 155 UNITS OTHER INTRAMUSCULAR
     Route: 030

REACTIONS (3)
  - Pneumonia [None]
  - Escherichia urinary tract infection [None]
  - COVID-19 [None]

NARRATIVE: CASE EVENT DATE: 20221218
